FAERS Safety Report 5271290-0 (Version None)
Quarter: 2007Q1

REPORT INFORMATION
  Report Type: 
  Country: None (occurrence: None)
  Receive Date: 20061214
  Receipt Date: 20060901
  Transmission Date: 20070707
  Serious: Yes (Hospitalization)
  Sender: FDA-Public Use
  Company Number: 2006069271

PATIENT
  Age: 75 Year
  Sex: Male
  Weight: 117.9352 kg

DRUGS (1)
  1. BEXTRA [Suspect]
     Indication: INTERVERTEBRAL DISC PROTRUSION
     Dosage: 20 MG (10 MG, 1 IN 2 D)
     Dates: start: 20030224

REACTIONS (1)
  - DEEP VEIN THROMBOSIS [None]
